FAERS Safety Report 5948783-3 (Version None)
Quarter: 2008Q4

REPORT INFORMATION
  Report Type: 
  Country: None (occurrence: None)
  Receive Date: 20081111
  Receipt Date: 20081029
  Transmission Date: 20090506
  Serious: Yes (Hospitalization)
  Sender: FDA-Public Use
  Company Number: JP-ROCHE-594749

PATIENT
  Age: 73 Year
  Sex: Female

DRUGS (5)
  1. DENOSINE IV [Suspect]
     Indication: DRUG USE FOR UNKNOWN INDICATION
     Route: 041
     Dates: start: 20070921, end: 20071001
  2. CIPROFLOXACIN [Suspect]
     Indication: DRUG USE FOR UNKNOWN INDICATION
     Route: 051
     Dates: start: 20070927, end: 20071001
  3. MICAFUNGIN [Concomitant]
     Route: 051
     Dates: start: 20070921, end: 20070927
  4. SULFAMETHOXAZOLE AND TRIMETHOPRIM [Concomitant]
     Dates: start: 20070923, end: 20071001
  5. ANTIBIOTIC NOS [Concomitant]
     Dates: start: 20070901

REACTIONS (1)
  - LUNG DISORDER [None]
